FAERS Safety Report 9033210 (Version 1)
Quarter: 2013Q1

REPORT INFORMATION
  Report Type: Spontaneous
  Country: US (occurrence: US)
  Receive Date: 20130128
  Receipt Date: 20130128
  Transmission Date: 20140127
  Serious: Yes (Other)
  Sender: FDA-Public Use
  Company Number: US-MYLANLABS-2012S1010058

PATIENT
  Sex: Female

DRUGS (2)
  1. AZATHIOPRINE [Suspect]
     Indication: HEPATIC FAILURE
     Route: 048
     Dates: start: 201101, end: 2012
  2. AZATHIOPRINE [Suspect]
     Indication: HEPATIC FAILURE
     Route: 048
     Dates: start: 2012

REACTIONS (1)
  - Thrombocytopenia [Not Recovered/Not Resolved]
